FAERS Safety Report 10727228 (Version 3)
Quarter: 2015Q1

REPORT INFORMATION
  Report Type: Spontaneous
  Country: US (occurrence: US)
  Receive Date: 20150121
  Receipt Date: 20150331
  Transmission Date: 20150721
  Serious: Yes (Other)
  Sender: FDA-Public Use
  Company Number: US-009507513-1501USA002568

PATIENT
  Age: 24 Year
  Sex: Female
  Weight: 49.43 kg

DRUGS (2)
  1. NEXPLANON [Suspect]
     Active Substance: ETONOGESTREL
     Dosage: UNK
     Route: 059
     Dates: start: 20141126
  2. NEXPLANON [Suspect]
     Active Substance: ETONOGESTREL
     Indication: CONTRACEPTION
     Dosage: UNK
     Route: 059
     Dates: start: 20140521, end: 20141126

REACTIONS (5)
  - Nausea [Unknown]
  - Device breakage [Recovered/Resolved]
  - Menstruation irregular [Unknown]
  - Fatigue [Unknown]
  - Increased appetite [Unknown]

NARRATIVE: CASE EVENT DATE: 20140521
